FAERS Safety Report 5386707-0 (Version None)
Quarter: 2007Q3

REPORT INFORMATION
  Report Type: 
  Country: None (occurrence: None)
  Receive Date: 20070713
  Receipt Date: 20070702
  Transmission Date: 20080115
  Serious: Yes (Hospitalization)
  Sender: FDA-Public Use
  Company Number: AU-ROCHE-504798

PATIENT
  Age: 50 Year
  Sex: Female

DRUGS (8)
  1. VALIUM [Suspect]
     Dosage: LONG TERM.
     Route: 048
  2. ZOLPIDEM TARTRATE [Suspect]
     Indication: DRUG USE FOR UNKNOWN INDICATION
     Route: 048
     Dates: end: 20070322
  3. EFFEXOR XR [Suspect]
     Indication: DRUG USE FOR UNKNOWN INDICATION
     Dosage: LONG TERM.
     Route: 065
  4. COLOXYL WITH SENNA [Concomitant]
  5. NEXIUM [Concomitant]
  6. NORFLEX [Concomitant]
  7. KAPANOL [Concomitant]
  8. DUROLAX [Concomitant]

REACTIONS (5)
  - AMNESIA [None]
  - FALL [None]
  - HEAD INJURY [None]
  - SLEEP DISORDER [None]
  - SOMNAMBULISM [None]
